FAERS Safety Report 9433895 (Version 1)
Quarter: 2013Q3

REPORT INFORMATION
  Report Type: Spontaneous
  Country: GB (occurrence: GB)
  Receive Date: 20130801
  Receipt Date: 20130801
  Transmission Date: 20140515
  Serious: Yes (Other)
  Sender: FDA-Public Use
  Company Number: PHHY2013GB079423

PATIENT
  Age: 43 Year
  Sex: Male

DRUGS (1)
  1. METHADONE [Suspect]
     Dosage: 170 MG, PER DAY

REACTIONS (6)
  - Panic attack [Unknown]
  - Torsade de pointes [Recovered/Resolved]
  - Tachyarrhythmia [Unknown]
  - Dyspnoea [Unknown]
  - Syncope [Unknown]
  - Electrocardiogram QT prolonged [Recovered/Resolved]
